FAERS Safety Report 20128265 (Version 1)
Quarter: 2021Q4

REPORT INFORMATION
  Report Type: Spontaneous
  Country: US (occurrence: US)
  Receive Date: 20211129
  Receipt Date: 20211129
  Transmission Date: 20220304
  Serious: No
  Sender: FDA-Public Use
  Company Number: US-drreddys-SPO/USA/21/0144090

PATIENT
  Sex: Female

DRUGS (2)
  1. NUPERCAINAL [Suspect]
     Active Substance: DIBUCAINE
     Indication: Haemorrhoids
     Route: 061
  2. NUPERCAINAL [Suspect]
     Active Substance: DIBUCAINE
     Indication: Skin abrasion

REACTIONS (1)
  - Product use in unapproved indication [Unknown]
